FAERS Safety Report 12803968 (Version 1)
Quarter: 2016Q4

REPORT INFORMATION
  Report Type: Spontaneous
  Country: GB (occurrence: GB)
  Receive Date: 20161003
  Receipt Date: 20161003
  Transmission Date: 20170207
  Serious: Yes (Hospitalization, Other)
  Sender: FDA-Public Use
  Company Number: GB-PFIZER INC-2016451130

PATIENT
  Age: 81 Year
  Sex: Male
  Weight: 77 kg

DRUGS (20)
  1. WARFARIN [Interacting]
     Active Substance: WARFARIN
     Indication: ATRIAL FIBRILLATION
     Dosage: 1 MG, UNK
     Route: 048
     Dates: start: 20160907, end: 20160907
  2. BISOPROLOL [Concomitant]
     Active Substance: BISOPROLOL
     Dosage: 10 MG DAILY IN THE MORNING
     Route: 048
  3. FLECAINIDE [Concomitant]
     Active Substance: FLECAINIDE
     Dosage: 100 MG, 2X/DAY
     Route: 048
  4. PARACETAMOL [Concomitant]
     Active Substance: ACETAMINOPHEN
     Indication: PAIN
     Dosage: 1 G, 4X/DAY
     Route: 048
     Dates: start: 20160906
  5. DALTEPARIN SODIUM [Concomitant]
     Active Substance: DALTEPARIN SODIUM
     Dosage: 5000 UNITS/0.2ML, NOCTE
     Route: 058
     Dates: start: 20160906, end: 20160909
  6. LANSOPRAZOLE. [Concomitant]
     Active Substance: LANSOPRAZOLE
     Indication: GASTROOESOPHAGEAL REFLUX DISEASE
     Dosage: 30 MG, 1X/DAY MORNING
     Route: 048
  7. ORAMORPH [Concomitant]
     Active Substance: MORPHINE SULFATE
     Indication: BREAKTHROUGH PAIN
     Dosage: 10-20 MG EVERY 1-2 HOURSS WHEN REQUIRED
     Route: 048
     Dates: start: 20160907
  8. ONDANSETRON [Concomitant]
     Active Substance: ONDANSETRON
     Indication: PROCEDURAL NAUSEA
     Dosage: 4 MG, EVERY 8 HOURS AS NEEDED
     Route: 048
     Dates: start: 20160908
  9. IBUPROFEN. [Concomitant]
     Active Substance: IBUPROFEN
     Dosage: 400 MG, 3X/DAY
     Route: 048
  10. CLINDAMYCIN PHOSPHATE. [Suspect]
     Active Substance: CLINDAMYCIN PHOSPHATE
     Indication: KNEE ARTHROPLASTY
     Dosage: 600 MG, 4X/DAY
     Route: 042
     Dates: start: 20160907, end: 20160912
  11. WARFARIN [Interacting]
     Active Substance: WARFARIN
     Dosage: WITHHELD PERI-OPERATIVELY.
     Route: 048
  12. CHLORPHENAMINE [Concomitant]
     Active Substance: CHLORPHENIRAMINE MALEATE
     Dosage: 4 MG, EVERY 4 HOURS WHEN REQUIRED
     Route: 048
     Dates: start: 20160909
  13. LACTULOSE. [Concomitant]
     Active Substance: LACTULOSE
     Dosage: 15 MILLION IU, 2X/DAY
     Route: 048
  14. DIHYDROCODEINE [Concomitant]
     Active Substance: DIHYDROCODEINE
     Dosage: 30 MG, EVERY 4-6 HOURS WHEN REQUIRED
     Route: 048
     Dates: start: 20160908
  15. GABAPENTIN. [Concomitant]
     Active Substance: GABAPENTIN
     Dosage: 300 MG, 2X/DAY
     Route: 048
     Dates: start: 20160906, end: 20160907
  16. FUROSEMIDE. [Concomitant]
     Active Substance: FUROSEMIDE
     Dosage: 40 MG, 1X/DAY MORNING
     Route: 048
  17. OMEPRAZOLE. [Concomitant]
     Active Substance: OMEPRAZOLE
     Dosage: 20 MG, 1X/DAY AT NIGHT.
     Route: 048
     Dates: start: 20160906, end: 20160912
  18. SIMVASTATIN. [Concomitant]
     Active Substance: SIMVASTATIN
     Dosage: 40 MG, 1X/DAY NOCTE
     Route: 048
  19. WARFARIN [Interacting]
     Active Substance: WARFARIN
     Dosage: 4 MG, UNK
     Route: 048
     Dates: start: 20160908, end: 20160911
  20. FLUCLOXACILLIN [Concomitant]
     Active Substance: FLUCLOXACILLIN
     Dosage: 1 G, STAT
     Route: 042
     Dates: start: 20160907, end: 20160907

REACTIONS (2)
  - International normalised ratio increased [Recovering/Resolving]
  - Drug interaction [Unknown]

NARRATIVE: CASE EVENT DATE: 20160911
